FAERS Safety Report 7994319-5 (Version None)
Quarter: 2011Q4

REPORT INFORMATION
  Report Type: 
  Country: None (occurrence: None)
  Receive Date: 20111217
  Receipt Date: 20111217
  Transmission Date: 20120403
  Serious: No
  Sender: FDA-Public Use
  Company Number: None

PATIENT
  Sex: Male

DRUGS (1)
  1. SOMATULINE DEPOT [Suspect]
     Dosage: 80 MG Q MONTH SQ
     Route: 058
     Dates: start: 20110401

REACTIONS (3)
  - ANXIETY [None]
  - CHEST DISCOMFORT [None]
  - TRISMUS [None]
